FAERS Safety Report 19729555 (Version 1)
Quarter: 2021Q3

REPORT INFORMATION
  Report Type: Other
  Country: US (occurrence: US)
  Receive Date: 20210821
  Receipt Date: 20210821
  Transmission Date: 20211014
  Serious: No
  Sender: FDA-Public Use
  Company Number: US-NEUROCRINE BIOSCIENCES INC.-2021NBI04401

PATIENT

DRUGS (19)
  1. HUMALOG [Concomitant]
     Active Substance: INSULIN LISPRO
     Dosage: UNK
  2. ATORVASTATIN [Concomitant]
     Active Substance: ATORVASTATIN
     Dosage: UNK
  3. LAMOTRIGINE. [Concomitant]
     Active Substance: LAMOTRIGINE
     Dosage: UNK
  4. LEVEMIR [Concomitant]
     Active Substance: INSULIN DETEMIR
     Dosage: UNK
  5. LEVOTHYROXINE. [Concomitant]
     Active Substance: LEVOTHYROXINE
     Dosage: UNK
  6. AMITIZA [Concomitant]
     Active Substance: LUBIPROSTONE
     Dosage: UNK
  7. FLUTICASONE. [Concomitant]
     Active Substance: FLUTICASONE
     Dosage: UNK, SPRAY
     Route: 045
  8. GABAPENTIN. [Concomitant]
     Active Substance: GABAPENTIN
     Dosage: UNK
  9. JANUMET [Concomitant]
     Active Substance: METFORMIN HYDROCHLORIDE\SITAGLIPTIN PHOSPHATE
     Dosage: UNK
  10. SPIRIVA [Concomitant]
     Active Substance: TIOTROPIUM BROMIDE MONOHYDRATE
     Dosage: UNK
  11. INGREZZA [Suspect]
     Active Substance: VALBENAZINE
     Indication: TARDIVE DYSKINESIA
     Dosage: 80 MILLIGRAM, QD
     Route: 048
     Dates: start: 2021
  12. DICLOFENAC [Concomitant]
     Active Substance: DICLOFENAC
     Dosage: UNK
  13. NEXIUM I.V. [Concomitant]
     Active Substance: ESOMEPRAZOLE SODIUM
     Dosage: UNK
  14. ASPIRIN (E.C.) [Concomitant]
     Active Substance: ASPIRIN
     Dosage: UNK
  15. PROAIR HFA [Concomitant]
     Active Substance: ALBUTEROL SULFATE
     Dosage: UNK
  16. TIZANIDINE. [Concomitant]
     Active Substance: TIZANIDINE
     Dosage: UNK
  17. CYMBALTA [Concomitant]
     Active Substance: DULOXETINE HYDROCHLORIDE
     Dosage: UNK
  18. DICYCLOMINE [Concomitant]
     Active Substance: DICYCLOMINE HYDROCHLORIDE
     Dosage: UNK
  19. LISINOPRIL. [Concomitant]
     Active Substance: LISINOPRIL
     Dosage: UNK

REACTIONS (1)
  - Depression [Unknown]

NARRATIVE: CASE EVENT DATE: 2021
